FAERS Safety Report 9462071 (Version 1)
Quarter: 2013Q3

REPORT INFORMATION
  Report Type: Spontaneous
  Country: US (occurrence: US)
  Receive Date: 20130816
  Receipt Date: 20130816
  Transmission Date: 20140515
  Serious: Yes (Other)
  Sender: FDA-Public Use
  Company Number: US-ABBOTT-13P-163-1130908-00

PATIENT
  Sex: Female
  Weight: 82.17 kg

DRUGS (7)
  1. SYNTHROID [Suspect]
     Indication: HYPOTHYROIDISM
     Dates: start: 2008
  2. SYNTHROID [Suspect]
     Dosage: ONE AND A HALF TABLETS
     Dates: start: 2009
  3. SYNTHROID [Suspect]
     Indication: HYPOTHYROIDISM
     Dates: end: 2009
  4. ADVIL [Suspect]
     Indication: ARTHRALGIA
  5. ALEVE [Suspect]
     Indication: ARTHRALGIA
  6. BABY ASPIRIN [Concomitant]
     Indication: PRODUCT USED FOR UNKNOWN INDICATION
  7. AVAPRO [Concomitant]
     Indication: HYPERTENSION

REACTIONS (7)
  - Feeling jittery [Recovered/Resolved]
  - Atrial flutter [Recovered/Resolved]
  - Arthralgia [Not Recovered/Not Resolved]
  - Arthralgia [Not Recovered/Not Resolved]
  - Urticaria [Recovered/Resolved]
  - Sjogren^s syndrome [Not Recovered/Not Resolved]
  - Fatigue [Not Recovered/Not Resolved]
